FAERS Safety Report 7438445-8 (Version None)
Quarter: 2011Q2

REPORT INFORMATION
  Report Type: 
  Country: None (occurrence: None)
  Receive Date: 20110426
  Receipt Date: 20110418
  Transmission Date: 20111010
  Serious: Yes (Other)
  Sender: FDA-Public Use
  Company Number: US-ASTRAZENECA-2011SE22027

PATIENT
  Age: 11427 Day
  Sex: Female
  Weight: 138.3 kg

DRUGS (11)
  1. PAXIL [Concomitant]
  2. SEROQUEL [Suspect]
     Indication: SCHIZOAFFECTIVE DISORDER
     Dosage: 25 MG TO 1000 MG
     Route: 048
     Dates: start: 20000101, end: 20060601
  3. WELLBUTRIN [Concomitant]
  4. ABILIFY [Concomitant]
     Dates: start: 20090101
  5. ZYPREXA [Concomitant]
     Dates: start: 20000101
  6. SEROQUEL [Suspect]
     Indication: DEPRESSION
     Dosage: 25 MG TO 1000 MG
     Route: 048
     Dates: start: 20000101, end: 20060601
  7. XENICAL [Concomitant]
     Indication: WEIGHT CONTROL
     Dates: start: 19990101
  8. GEODON [Concomitant]
     Dates: start: 20080101
  9. THORAZINE [Concomitant]
     Dates: start: 19800101
  10. HALDOL [Concomitant]
     Dates: start: 19900101
  11. RISPERDAL [Concomitant]
     Dates: start: 20000101

REACTIONS (3)
  - GALLBLADDER DISORDER [None]
  - TYPE 2 DIABETES MELLITUS [None]
  - ACCIDENTAL OVERDOSE [None]
